FAERS Safety Report 8340057-9 (Version None)
Quarter: 2012Q2

REPORT INFORMATION
  Report Type: 
  Country: None (occurrence: None)
  Receive Date: 20120507
  Receipt Date: 20090407
  Transmission Date: 20120825
  Serious: No
  Sender: FDA-Public Use
  Company Number: US-TEVA-2009002253

PATIENT
  Sex: Female

DRUGS (2)
  1. TREANDA [Suspect]
     Indication: LYMPHOMA
     Route: 042
     Dates: start: 20090226
  2. RITUXAN [Suspect]
     Indication: LYMPHOMA
     Dates: start: 20090226

REACTIONS (3)
  - SKIN DISCOLOURATION [None]
  - LEUKOCYTOCLASTIC VASCULITIS [None]
  - UNEVALUABLE EVENT [None]
